FAERS Safety Report 6089652-0 (Version None)
Quarter: 2009Q1

REPORT INFORMATION
  Report Type: 
  Country: None (occurrence: None)
  Receive Date: 20090224
  Receipt Date: 20090219
  Transmission Date: 20090719
  Serious: No
  Sender: FDA-Public Use
  Company Number: US-B.I. PHARMACEUTICALS,INC./RIDGEFIELD-2009-BP-02131BP

PATIENT
  Sex: Male

DRUGS (3)
  1. SPIRIVA [Suspect]
     Indication: BRONCHITIS CHRONIC
     Dosage: 18MCG
     Route: 055
     Dates: start: 20090206
  2. LOTENSIN [Concomitant]
     Indication: HYPERTENSION
     Route: 048
  3. HYDROXYUREA [Concomitant]
     Indication: PLATELET COUNT INCREASED

REACTIONS (2)
  - COUGH [None]
  - DYSPNOEA [None]
